FAERS Safety Report 11809109 (Version 1)
Quarter: 2015Q4

REPORT INFORMATION
  Report Type: Spontaneous
  Country: US (occurrence: US)
  Receive Date: 20151207
  Receipt Date: 20151207
  Transmission Date: 20160305
  Serious: Yes (Life-Threatening, Hospitalization)
  Sender: FDA-Public Use
  Company Number: US-JAZZ-2014-US-003697

PATIENT
  Sex: Female

DRUGS (4)
  1. XYREM [Suspect]
     Active Substance: SODIUM OXYBATE
     Indication: FIBROMYALGIA
     Dosage: 2.25 G, BID
     Route: 048
     Dates: start: 201202
  2. XYREM [Suspect]
     Active Substance: SODIUM OXYBATE
     Dosage: DOSE ADJUSTMENTS
     Route: 048
  3. XYREM [Suspect]
     Active Substance: SODIUM OXYBATE
     Dosage: 5.75 G, TID
     Route: 048
     Dates: start: 201402, end: 201510
  4. XYREM [Suspect]
     Active Substance: SODIUM OXYBATE
     Dosage: 7 G, TID
     Route: 048
     Dates: start: 201510

REACTIONS (6)
  - Pain [Not Recovered/Not Resolved]
  - Sepsis [Unknown]
  - Malaise [Not Recovered/Not Resolved]
  - Incision site pain [Not Recovered/Not Resolved]
  - Abdominoplasty [Unknown]
  - Toxic shock syndrome streptococcal [Unknown]

NARRATIVE: CASE EVENT DATE: 2014
